FAERS Safety Report 7411946-4 (Version None)
Quarter: 2011Q2

REPORT INFORMATION
  Report Type: 
  Country: None (occurrence: None)
  Receive Date: 20110413
  Receipt Date: 20110128
  Transmission Date: 20111010
  Serious: Yes (Life-Threatening)
  Sender: FDA-Public Use
  Company Number: FR-SANOFI-AVENTIS-2010SA045003

PATIENT
  Age: 55 Year
  Sex: Female

DRUGS (11)
  1. BACTRIM [Concomitant]
     Route: 048
     Dates: start: 20100604
  2. CACIT D3 [Concomitant]
     Route: 048
     Dates: start: 20100605
  3. MINIRIN [Suspect]
     Indication: BLEEDING TIME PROLONGED
     Route: 042
     Dates: start: 20100607, end: 20100607
  4. VITAMIN B1 AND B6 [Concomitant]
     Route: 065
     Dates: start: 20100604
  5. LOXEN [Concomitant]
     Route: 042
     Dates: end: 20100606
  6. CORTANCYL [Concomitant]
     Route: 065
     Dates: end: 20100604
  7. ESOMEPRAZOLE MAGNESIUM [Concomitant]
     Route: 065
     Dates: start: 20100604
  8. PNEUMO 23 [Concomitant]
     Route: 065
  9. OFLOCET [Concomitant]
     Route: 042
  10. ROSUVASTATIN CALCIUM [Concomitant]
     Route: 065
     Dates: start: 20100605
  11. LOVENOX [Concomitant]
     Route: 065
     Dates: start: 20100604

REACTIONS (2)
  - CYANOSIS [None]
  - MYOCARDIAL INFARCTION [None]
